FAERS Safety Report 6907029-X (Version None)
Quarter: 2010Q3

REPORT INFORMATION
  Report Type: 
  Country: None (occurrence: None)
  Receive Date: 20100802
  Receipt Date: 20100719
  Transmission Date: 20110219
  Serious: Yes (Hospitalization)
  Sender: FDA-Public Use
  Company Number: IPC201007-000220

PATIENT
  Age: 48 Year
  Sex: Male

DRUGS (3)
  1. ATENOLOL [Suspect]
     Indication: HYPERTENSION
     Dosage: 50MG
  2. METHYLPREDNISOLONE [Suspect]
     Dosage: 30MG/KG OVER 45MIN; 5.4MG/KG/H GIVEN OVER NEXT 23 HRS
  3. IBUPROFEN [Suspect]

REACTIONS (11)
  - ANTERIOR SPINAL ARTERY SYNDROME [None]
  - DEEP VEIN THROMBOSIS [None]
  - GASTRITIS [None]
  - GASTROINTESTINAL HAEMORRHAGE [None]
  - HYPOTENSION [None]
  - INTERVERTEBRAL DISC PROTRUSION [None]
  - LETHARGY [None]
  - PNEUMONIA [None]
  - SPINAL COLUMN STENOSIS [None]
  - SPINAL SHOCK [None]
  - STRESS [None]
